FAERS Safety Report 6536588-4 (Version None)
Quarter: 2010Q1

REPORT INFORMATION
  Report Type: 
  Country: None (occurrence: None)
  Receive Date: 20100106
  Receipt Date: 20091222
  Transmission Date: 20100710
  Serious: Yes (Other)
  Sender: FDA-Public Use
  Company Number: 2009SP042781

PATIENT
  Age: 61 Year
  Sex: Female

DRUGS (1)
  1. DIPROPHOS (BETAMETHASONE SODIUM PHOSPHATE/DIPROPIONATE) (BETAMETHASONE [Suspect]
     Indication: HEADACHE
     Dosage: 1 DF;QM;
     Dates: start: 20091102

REACTIONS (3)
  - AORTIC ANEURYSM [None]
  - HEADACHE [None]
  - VOMITING [None]
